FAERS Safety Report 8202070-1 (Version None)
Quarter: 2012Q1

REPORT INFORMATION
  Report Type: 
  Country: None (occurrence: None)
  Receive Date: 20120227
  Receipt Date: 20111208
  Transmission Date: 20120608
  Serious: No
  Sender: FDA-Public Use
  Company Number: 341081

PATIENT
  Age: 64 Year
  Sex: Female

DRUGS (1)
  1. VICTOZA [Suspect]
     Indication: TYPE 2 DIABETES MELLITUS
     Dosage: 1.2 MG, QD, SUBCUTANEOUS
     Route: 058

REACTIONS (9)
  - MALAISE [None]
  - PAIN IN EXTREMITY [None]
  - FATIGUE [None]
  - VOMITING [None]
  - DIARRHOEA [None]
  - CONSTIPATION [None]
  - NAUSEA [None]
  - UPPER RESPIRATORY TRACT INFECTION [None]
  - INJECTION SITE PAIN [None]
